FAERS Safety Report 25690081 (Version 1)
Quarter: 2025Q3

REPORT INFORMATION
  Report Type: Spontaneous
  Country: US (occurrence: US)
  Receive Date: 20250818
  Receipt Date: 20250818
  Transmission Date: 20251020
  Serious: No
  Sender: STALLERGENES
  Company Number: US-AIMMUNE THERAPEUTICS, INC.-2023AIMT00901

PATIENT
  Age: 16 Year
  Sex: Female

DRUGS (3)
  1. PALFORZIA [Suspect]
     Active Substance: PEANUT
     Indication: Food allergy
     Route: 048
  2. PALFORZIA [Suspect]
     Active Substance: PEANUT
     Dosage: 6 MG, 1X/DAY- REACTIVE DOSE
     Route: 048
     Dates: start: 20230823
  3. PALFORZIA [Suspect]
     Active Substance: PEANUT
     Dosage: 3 MG, 1X/DAY, DOSE DECREASED IN RESPONSE TO REPORTED AE^S AND EVENTUALLY DISCONTINUED
     Route: 048
     Dates: start: 20230829, end: 202308

REACTIONS (5)
  - Therapy cessation [Unknown]
  - Fatigue [Unknown]
  - Throat irritation [Unknown]
  - Nausea [Unknown]
  - Vomiting [Unknown]

NARRATIVE: CASE EVENT DATE: 20230801
